FAERS Safety Report 15153454 (Version 22)
Quarter: 2021Q1

REPORT INFORMATION
  Report Type: Spontaneous
  Country: FR (occurrence: FR)
  Receive Date: 20180717
  Receipt Date: 20210126
  Transmission Date: 20210419
  Serious: Yes (Other)
  Sender: FDA-Public Use
  Company Number: FR-MYLANLABS-2018M1050620

PATIENT
  Sex: Female
  Weight: 77 kg

DRUGS (130)
  1. GABAPENTIN. [Suspect]
     Active Substance: GABAPENTIN
     Dosage: 400 MILLIGRAM, QD
     Route: 048
     Dates: start: 20160930
  2. AMOXICILLIN. [Suspect]
     Active Substance: AMOXICILLIN
     Dosage: 1 GRAM, QD
     Route: 048
     Dates: start: 201708, end: 20180811
  3. FUROSEMIDE. [Suspect]
     Active Substance: FUROSEMIDE
     Dosage: 50 MG, UNK
     Route: 065
  4. METHYLDOPA MSD [Suspect]
     Active Substance: METHYLDOPA
     Dosage: 500 MILLIGRAM, QD
     Route: 065
     Dates: start: 20170720
  5. LOXEN                              /00639802/ [Suspect]
     Active Substance: NICARDIPINE HYDROCHLORIDE
     Dosage: 1 DOSAGE FORM
     Route: 065
     Dates: start: 20170313, end: 20180405
  6. LAROXYL [Suspect]
     Active Substance: AMITRIPTYLINE HYDROCHLORIDE
     Dosage: UNK
     Route: 065
  7. FORLAX [Suspect]
     Active Substance: POLYETHYLENE GLYCOL 4000
     Dosage: 1 DOSAGE FORM, UNK
     Dates: start: 20160930, end: 20170224
  8. LANTUS [Suspect]
     Active Substance: INSULIN GLARGINE
     Dosage: 20 INTERNATIONAL UNIT, QD
     Route: 065
     Dates: start: 20170224, end: 20170914
  9. NICOPATCH [Suspect]
     Active Substance: NICOTINE
     Indication: EX-TOBACCO USER
     Dosage: 7 MILLIGRAM, QD
     Route: 065
     Dates: start: 20170224, end: 20170516
  10. FERROUS SULFATE. [Suspect]
     Active Substance: FERROUS SULFATE
     Indication: NORMOCHROMIC NORMOCYTIC ANAEMIA
     Dosage: 1 DOSAGE FORM, QD
     Route: 065
     Dates: start: 20170313
  11. FOLIC ACID. [Suspect]
     Active Substance: FOLIC ACID
     Dosage: 5 MG, QD
     Route: 065
     Dates: start: 20170224, end: 20170313
  12. TRAMADOL. [Suspect]
     Active Substance: TRAMADOL
     Indication: DIABETIC NEUROPATHY
     Dosage: 100 MILLIGRAM, QD
     Route: 065
     Dates: start: 20160930, end: 20170306
  13. TRAMADOL. [Suspect]
     Active Substance: TRAMADOL
     Dosage: 50 MILLIGRAM, QD
     Route: 065
     Dates: start: 20170306
  14. FOLIC ACID. [Suspect]
     Active Substance: FOLIC ACID
     Dosage: 5 MG, QD
     Route: 065
     Dates: start: 20170313
  15. ARIPIPRAZOLE. [Suspect]
     Active Substance: ARIPIPRAZOLE
     Dosage: 10 MG, QD
     Route: 065
     Dates: start: 20160930
  16. AMITRIPTYLINE [Suspect]
     Active Substance: AMITRIPTYLINE
     Indication: DIABETIC NEUROPATHY
     Dosage: 2 DOSAGE FORM, QD
     Dates: start: 20160930
  17. METFORMIN [Suspect]
     Active Substance: METFORMIN HYDROCHLORIDE
     Indication: TYPE 2 DIABETES MELLITUS
     Dosage: 850 MILLIGRAM, QD
     Route: 048
     Dates: start: 20170224
  18. FUROSEMIDE. [Suspect]
     Active Substance: FUROSEMIDE
     Dosage: 40 MILLIGRAM, QD
     Route: 065
  19. LARGACTIL LEIRAS                   /00011902/ [Suspect]
     Active Substance: CHLORPROMAZINE HYDROCHLORIDE
     Dosage: 25 MILLIGRAM, QD
     Route: 048
     Dates: start: 20170720
  20. LOXEN                              /00639802/ [Suspect]
     Active Substance: NICARDIPINE HYDROCHLORIDE
     Dosage: 50 MG, 50MG FORME LP X2/J
     Route: 065
  21. LOXEN                              /00639802/ [Suspect]
     Active Substance: NICARDIPINE HYDROCHLORIDE
     Dosage: UNK
  22. DIFFU?K [Suspect]
     Active Substance: POTASSIUM CHLORIDE
     Indication: HYPOKALAEMIA
     Dosage: 3600 MG, QD (1X/DAY (3600 MG, QD, 1200 MG, QD (1200 MG, QD (2 TO 3 TIMES PER DAY))
     Route: 065
     Dates: start: 20170804
  23. DIFFU?K [Suspect]
     Active Substance: POTASSIUM CHLORIDE
     Dosage: 1200 MILLIGRAM, QD
     Route: 065
     Dates: start: 20170804
  24. TARDYFERON [Suspect]
     Active Substance: FERROUS SULFATE
     Dosage: 1 DOSAGE FORM
     Route: 065
     Dates: start: 20170914
  25. FORLAX [Suspect]
     Active Substance: POLYETHYLENE GLYCOL 4000
     Dosage: 1 DOSAGE FORM, UNK
     Dates: start: 20170224
  26. LOXEN L P [Suspect]
     Active Substance: NICARDIPINE HYDROCHLORIDE
     Dosage: 50 MILLIGRAM
     Route: 065
     Dates: start: 20170313, end: 20170405
  27. HUMALOG [Suspect]
     Active Substance: INSULIN LISPRO
     Dosage: 21 MICROGRAM/SQ. METER, QD
     Route: 065
     Dates: start: 20170914
  28. LANTUS [Suspect]
     Active Substance: INSULIN GLARGINE
     Dosage: 20 INTERNATIONAL UNIT, QD
     Route: 065
     Dates: start: 20170914
  29. LEVEMIR [Suspect]
     Active Substance: INSULIN DETEMIR
     Dosage: 10 INTERNATIONAL UNIT, QD
     Route: 065
     Dates: start: 20170224
  30. POTASSIUM CHLORIDE. [Suspect]
     Active Substance: POTASSIUM CHLORIDE
     Dosage: 1200 MILLIGRAM, QD
     Route: 065
     Dates: start: 20170804
  31. POTASSIUM CHLORIDE. [Suspect]
     Active Substance: POTASSIUM CHLORIDE
     Dosage: 1200 MILLIGRAM
     Route: 065
  32. AMITRIPTYLINE HYDROCHLORIDE. [Suspect]
     Active Substance: AMITRIPTYLINE HYDROCHLORIDE
     Indication: DIABETIC NEUROPATHY
     Dosage: 2 DOSAGE FORM, QD
     Route: 065
     Dates: start: 20160930
  33. LASIX [Suspect]
     Active Substance: FUROSEMIDE
     Dosage: 50 MILLIGRAM, QD
     Route: 065
  34. INSULIN [Suspect]
     Active Substance: INSULIN NOS
     Dosage: UNK
     Route: 065
     Dates: start: 20160930, end: 20170224
  35. LANTUS [Suspect]
     Active Substance: INSULIN GLARGINE
     Indication: TYPE 2 DIABETES MELLITUS
     Dosage: 20 MILLIGRAM, QD
     Route: 048
     Dates: start: 20170224
  36. TRAMADOL. [Suspect]
     Active Substance: TRAMADOL
     Dosage: 50 MILLIGRAM, QD
     Route: 065
     Dates: start: 20160930, end: 20170306
  37. FOLIC ACID. [Suspect]
     Active Substance: FOLIC ACID
     Dosage: 5 MILLIGRAM, QD
     Route: 065
  38. AMOXICILLIN. [Suspect]
     Active Substance: AMOXICILLIN
     Indication: PRODUCT USED FOR UNKNOWN INDICATION
     Dosage: 3 G, QD
     Route: 048
     Dates: start: 20170804, end: 20170811
  39. AMOXICILLIN. [Suspect]
     Active Substance: AMOXICILLIN
     Dosage: 1 GRAM, QD
     Route: 065
     Dates: start: 20170804
  40. AMOXICILLIN. [Suspect]
     Active Substance: AMOXICILLIN
     Dosage: UNK
  41. AMOXICILLIN. [Suspect]
     Active Substance: AMOXICILLIN
     Dosage: 1 MILLIGRAM, QD
     Dates: start: 201708, end: 20180811
  42. RAMIPRIL. [Suspect]
     Active Substance: RAMIPRIL
     Indication: HYPERTENSION
     Dosage: 2.5 MG, QD
     Route: 048
     Dates: start: 20160930, end: 20170224
  43. RAMIPRIL. [Suspect]
     Active Substance: RAMIPRIL
     Dosage: 2.5 MILLIGRAM, QD
     Route: 065
     Dates: start: 20170224
  44. METFORMIN [Suspect]
     Active Substance: METFORMIN HYDROCHLORIDE
     Dosage: 1700 MILLIGRAM, QD
     Route: 048
     Dates: start: 20170804
  45. INSULIN GLARGINE [Suspect]
     Active Substance: INSULIN GLARGINE
     Indication: TYPE 2 DIABETES MELLITUS
     Dosage: UNK
     Route: 065
     Dates: start: 20161230, end: 20170224
  46. DIFFU?K [Suspect]
     Active Substance: POTASSIUM CHLORIDE
     Dosage: UNK
     Route: 065
     Dates: start: 20170804
  47. DIFFU?K [Suspect]
     Active Substance: POTASSIUM CHLORIDE
     Dosage: 1200 MILLIGRAM
     Route: 065
  48. FORLAX [Suspect]
     Active Substance: POLYETHYLENE GLYCOL 4000
     Dosage: 1 DOSAGE FORM, QD
     Route: 065
     Dates: start: 20170224
  49. FORLAX [Suspect]
     Active Substance: POLYETHYLENE GLYCOL 4000
     Dosage: 1 DOSAGE FORM, QD
     Route: 065
     Dates: start: 20160930
  50. LOXEN L P [Suspect]
     Active Substance: NICARDIPINE HYDROCHLORIDE
     Dosage: 100 MILLIGRAM, QD
     Route: 064
     Dates: start: 20180405
  51. LOXEN L P [Suspect]
     Active Substance: NICARDIPINE HYDROCHLORIDE
     Dosage: 50 MG, UNK
     Route: 065
     Dates: start: 20180405
  52. HUMALOG [Suspect]
     Active Substance: INSULIN LISPRO
     Indication: TYPE 2 DIABETES MELLITUS
     Dosage: 21 MICROGRAM/SQ. METER, QD
     Route: 065
     Dates: start: 20170224, end: 20170224
  53. HUMALOG [Suspect]
     Active Substance: INSULIN LISPRO
     Dosage: UNK
     Route: 065
  54. LEVEMIR [Suspect]
     Active Substance: INSULIN DETEMIR
     Indication: TYPE 2 DIABETES MELLITUS
     Dosage: 10 INTERNATIONAL UNIT, QD
     Route: 065
     Dates: start: 20160930, end: 20170224
  55. FOLIC ACID. [Suspect]
     Active Substance: FOLIC ACID
     Dosage: 5 MILLIGRAM, QD
     Route: 065
     Dates: start: 20170914
  56. AMOXICILLIN SODIUM [Suspect]
     Active Substance: AMOXICILLIN SODIUM
     Indication: PRODUCT USED FOR UNKNOWN INDICATION
     Dosage: 3 GRAM, QD
     Route: 048
     Dates: start: 20170804, end: 20170811
  57. PROPRANOLOL HYDROCHLORIDE. [Suspect]
     Active Substance: PROPRANOLOL HYDROCHLORIDE
     Indication: HYPERTENSION
     Dosage: 80 MG, DRUG INTERVAL DOSAGE OF 1 DAY
     Route: 065
     Dates: start: 20170516
  58. LASIX [Suspect]
     Active Substance: FUROSEMIDE
     Indication: HYPERTENSION
     Dosage: 50 MG, UNK
     Route: 065
     Dates: start: 20170516
  59. LASIX [Suspect]
     Active Substance: FUROSEMIDE
     Dosage: 40 MILLIGRAM, QD
     Route: 065
     Dates: start: 20170516, end: 20170914
  60. NICOTINE. [Suspect]
     Active Substance: NICOTINE
     Indication: PRODUCT USED FOR UNKNOWN INDICATION
     Dosage: 7 MILLIGRAM, QD
     Route: 065
     Dates: start: 20170914
  61. FOLIC ACID. [Suspect]
     Active Substance: FOLIC ACID
     Indication: NORMOCHROMIC NORMOCYTIC ANAEMIA
     Dosage: 5 MILLIGRAM, QD
     Route: 065
     Dates: start: 20170224
  62. ARIPIPRAZOLE. [Suspect]
     Active Substance: ARIPIPRAZOLE
     Indication: BIPOLAR I DISORDER
     Dosage: 10 MG, QD
     Route: 065
     Dates: start: 20160930, end: 20170224
  63. AMOXICILLIN. [Suspect]
     Active Substance: AMOXICILLIN
     Dosage: 3 G, QD
     Route: 065
     Dates: start: 20170811
  64. METFORMIN [Suspect]
     Active Substance: METFORMIN HYDROCHLORIDE
     Dosage: 850 MILLIGRAM, QD
     Route: 065
     Dates: start: 20160930, end: 20170224
  65. METFORMIN [Suspect]
     Active Substance: METFORMIN HYDROCHLORIDE
     Dosage: 850 MILLIGRAM, QD
     Route: 048
     Dates: start: 20180924
  66. METHYLDOPA MSD [Suspect]
     Active Substance: METHYLDOPA
     Dosage: 1500 MILLIGRAM, QD
     Route: 048
  67. LOXEN                              /00639802/ [Suspect]
     Active Substance: NICARDIPINE HYDROCHLORIDE
     Dosage: 100 UNK
     Route: 065
     Dates: start: 20170313, end: 20170405
  68. FORLAX [Suspect]
     Active Substance: POLYETHYLENE GLYCOL 4000
     Indication: NORMOCHROMIC NORMOCYTIC ANAEMIA
     Dosage: 1 DOSAGE FORM, QD
     Route: 065
     Dates: start: 20170405
  69. FORLAX [Suspect]
     Active Substance: POLYETHYLENE GLYCOL 4000
     Dosage: 1 DOSAGE FORM, QD
     Dates: start: 20170313
  70. LANTUS [Suspect]
     Active Substance: INSULIN GLARGINE
     Indication: TYPE 2 DIABETES MELLITUS
     Dosage: 200 MG, UNK
     Route: 065
  71. LABETALOL HCL [Suspect]
     Active Substance: LABETALOL HYDROCHLORIDE
     Dosage: 80 MG, QD
     Route: 065
     Dates: start: 20170914
  72. FOLIC ACID. [Suspect]
     Active Substance: FOLIC ACID
     Dosage: 5 MILLIGRAM, QD
     Dates: start: 20170224, end: 20171014
  73. NICARDIPINE [Suspect]
     Active Substance: NICARDIPINE
     Indication: HYPERTENSION
     Dosage: 50 MG, UNK,50MG FORME LP X2/J
     Route: 065
  74. NICARDIPINE [Suspect]
     Active Substance: NICARDIPINE
     Dosage: UNK
     Route: 065
  75. AMOXICILLIN. [Suspect]
     Active Substance: AMOXICILLIN
     Dosage: 1 GRAM, QD
     Route: 065
     Dates: start: 20170811
  76. METHYLDOPA MSD [Suspect]
     Active Substance: METHYLDOPA
     Dosage: 500 MILLIGRAM, QD
     Route: 065
     Dates: start: 20170620
  77. LARGACTIL LEIRAS                   /00011902/ [Suspect]
     Active Substance: CHLORPROMAZINE HYDROCHLORIDE
     Indication: BIPOLAR I DISORDER
     Dosage: 0.5 DOSAGE FORM
     Route: 065
  78. FORLAX [Suspect]
     Active Substance: POLYETHYLENE GLYCOL 4000
     Indication: CONSTIPATION
     Dosage: 1 DOSAGE FORM, QD
     Route: 065
     Dates: start: 20160930, end: 20170405
  79. FOLINIC ACID [Suspect]
     Active Substance: LEUCOVORIN
     Dosage: 5 MG, QD
     Route: 065
     Dates: start: 20170313
  80. HUMALOG [Suspect]
     Active Substance: INSULIN LISPRO
     Dosage: 7 MICROGRAM/SQ. METER, QD
     Route: 065
     Dates: start: 20170224
  81. FERROUS SULFATE. [Suspect]
     Active Substance: FERROUS SULFATE
     Dosage: 1 DOSAGE FORM, QD
     Route: 065
     Dates: start: 20170914
  82. NICARDIPINE [Suspect]
     Active Substance: NICARDIPINE
     Dosage: 100 MILLIGRAM, QD
     Dates: start: 20170405
  83. GABAPENTIN. [Suspect]
     Active Substance: GABAPENTIN
     Indication: DIABETIC NEUROPATHY
     Dosage: 80 MG, QD
     Route: 048
     Dates: start: 20160930
  84. GABAPENTIN. [Suspect]
     Active Substance: GABAPENTIN
     Dosage: 800 MILLIGRAM, QD
     Route: 048
     Dates: start: 20160930
  85. GLICLAZIDE [Suspect]
     Active Substance: GLICLAZIDE
     Dosage: 120 MILLIGRAM, QD
     Route: 065
     Dates: start: 20170224
  86. METFORMIN [Suspect]
     Active Substance: METFORMIN HYDROCHLORIDE
     Dosage: 1700 MILLIGRAM, QD
     Route: 065
     Dates: start: 20170804
  87. FUROSEMIDE. [Suspect]
     Active Substance: FUROSEMIDE
     Dosage: UNK
     Route: 065
  88. METHYLDOPA MSD [Suspect]
     Active Substance: METHYLDOPA
     Indication: HYPERTENSION
     Dosage: 1500 MILLIGRAM, QD
     Route: 048
     Dates: start: 20170720
  89. METHYLDOPA MSD [Suspect]
     Active Substance: METHYLDOPA
     Dosage: 500 MILLIGRAM, QD
     Route: 048
  90. METHYLDOPA MSD [Suspect]
     Active Substance: METHYLDOPA
     Dosage: 15000 MILLIGRAM, QD
     Route: 048
     Dates: start: 20170720
  91. LOXEN                              /00639802/ [Suspect]
     Active Substance: NICARDIPINE HYDROCHLORIDE
     Indication: HYPERTENSION
     Dosage: 50 MG, QD
     Route: 065
     Dates: start: 20170313, end: 20170405
  92. LAROXYL [Suspect]
     Active Substance: AMITRIPTYLINE HYDROCHLORIDE
     Dosage: 2 DOSAGE FORM, QD
     Route: 065
     Dates: start: 20170914
  93. INSULIN LISPRO [Suspect]
     Active Substance: INSULIN LISPRO
     Indication: TYPE 2 DIABETES MELLITUS
     Dosage: 21 MICROGRAM/SQ. METER, QD
     Route: 065
     Dates: start: 20170224, end: 20170224
  94. CHLORPROMAZINE HYDROCHLORIDE. [Suspect]
     Active Substance: CHLORPROMAZINE HYDROCHLORIDE
     Dosage: 25 MILLIGRAM, QD
     Route: 065
     Dates: start: 20170722
  95. FOLIC ACID. [Suspect]
     Active Substance: FOLIC ACID
     Indication: NORMOCHROMIC NORMOCYTIC ANAEMIA
     Dosage: 5 MILLIGRAM, QD
     Route: 065
     Dates: start: 20170313
  96. NICARDIPINE [Suspect]
     Active Substance: NICARDIPINE
     Dosage: 50 MG, UNK
     Route: 065
     Dates: start: 20170405
  97. INSULIN [Suspect]
     Active Substance: INSULIN NOS
     Indication: TYPE 2 DIABETES MELLITUS
     Dosage: UNK UNK,UNK
     Route: 065
     Dates: start: 20161230, end: 20170224
  98. INSULIN [Suspect]
     Active Substance: INSULIN NOS
     Dosage: UNK
     Route: 065
     Dates: start: 20160930, end: 20180224
  99. FUROSEMIDE. [Suspect]
     Active Substance: FUROSEMIDE
     Indication: HYPERTENSION
     Dosage: 40 MILLIGRAM,UNK
     Route: 065
     Dates: start: 20170516
  100. FUROSEMIDE. [Suspect]
     Active Substance: FUROSEMIDE
     Dosage: 50 MILLIGRAM
     Route: 065
  101. LARGACTIL LEIRAS                   /00011902/ [Suspect]
     Active Substance: CHLORPROMAZINE HYDROCHLORIDE
     Dosage: 25 MILLIGRAM, QD
     Route: 065
     Dates: start: 20170720
  102. FORLAX [Suspect]
     Active Substance: POLYETHYLENE GLYCOL 4000
     Dosage: 120 MILLIGRAM, QD
     Route: 065
     Dates: start: 20160930, end: 20170224
  103. LOXEN L P [Suspect]
     Active Substance: NICARDIPINE HYDROCHLORIDE
     Dosage: 1 DOSAGE FORM
     Route: 065
     Dates: start: 20170313, end: 20180405
  104. FOLINIC ACID [Suspect]
     Active Substance: LEUCOVORIN
     Indication: NORMOCHROMIC NORMOCYTIC ANAEMIA
     Dosage: 5 MILLIGRAM, QD
     Route: 065
     Dates: start: 20170224, end: 20170313
  105. LABETALOL HCL [Suspect]
     Active Substance: LABETALOL HYDROCHLORIDE
     Indication: HYPERTENSION
     Dosage: 80 MG, QD
     Route: 065
     Dates: start: 20170516, end: 20170914
  106. LABETALOL HCL [Suspect]
     Active Substance: LABETALOL HYDROCHLORIDE
     Dosage: 80 MG, QD
     Route: 065
     Dates: start: 20170516
  107. INSULIN LISPRO [Suspect]
     Active Substance: INSULIN LISPRO
     Dosage: 7 UG/M2, QD
     Route: 065
     Dates: start: 20170224
  108. NICARDIPINE [Suspect]
     Active Substance: NICARDIPINE
     Dosage: 1 DOSAGE FORM
     Route: 065
     Dates: start: 20170313, end: 20180405
  109. INSULIN [Suspect]
     Active Substance: INSULIN NOS
     Dosage: UNK
     Route: 065
  110. FOLIC ACID. [Suspect]
     Active Substance: FOLIC ACID
     Dosage: UNK
  111. GLICLAZIDE [Suspect]
     Active Substance: GLICLAZIDE
     Indication: TYPE 2 DIABETES MELLITUS
     Dosage: 120 MG, QD
     Route: 065
     Dates: start: 20160930, end: 20170224
  112. RAMIPRIL. [Suspect]
     Active Substance: RAMIPRIL
     Dosage: 2.5 MILLIGRAM, QD
     Route: 048
     Dates: start: 20160930, end: 20170224
  113. METFORMIN [Suspect]
     Active Substance: METFORMIN HYDROCHLORIDE
     Dosage: 1700 MILLIGRAM, QD
     Route: 048
     Dates: start: 20160930, end: 20170224
  114. FUROSEMIDE. [Suspect]
     Active Substance: FUROSEMIDE
     Dosage: 40 MILLIGRAM,UNK
     Route: 065
  115. LARGACTIL LEIRAS                   /00011902/ [Suspect]
     Active Substance: CHLORPROMAZINE HYDROCHLORIDE
     Dosage: 1 DOSAGE FORM
     Route: 065
  116. TARDYFERON [Suspect]
     Active Substance: FERROUS SULFATE
     Indication: NORMOCHROMIC NORMOCYTIC ANAEMIA
     Dosage: 1 DOSAGE FORM, QD
     Route: 065
     Dates: start: 20170313
  117. TARDYFERON [Suspect]
     Active Substance: FERROUS SULFATE
     Dosage: 1 DOSAGE FORM, QD
     Route: 065
     Dates: start: 20170914
  118. LAROXYL [Suspect]
     Active Substance: AMITRIPTYLINE HYDROCHLORIDE
     Indication: DIABETIC NEUROPATHY
     Dosage: 2 DOSAGE FORM, QD
     Route: 065
     Dates: start: 20160930
  119. LOXEN L P [Suspect]
     Active Substance: NICARDIPINE HYDROCHLORIDE
     Indication: HYPERTENSION
     Dosage: 50MG FORME LP X2/J
     Route: 065
     Dates: start: 20170313, end: 20180405
  120. FOLINIC ACID [Suspect]
     Active Substance: LEUCOVORIN
     Dosage: 5 MILLIGRAM, QD
     Route: 065
     Dates: start: 20170224
  121. HUMALOG [Suspect]
     Active Substance: INSULIN LISPRO
     Dosage: 1 DOSAGE FORM, QD
     Route: 065
     Dates: start: 20170224
  122. HUMALOG [Suspect]
     Active Substance: INSULIN LISPRO
     Dosage: 21 MICROGRAM/SQ. METER, QD
     Route: 065
     Dates: start: 20170224
  123. NICOPATCH [Suspect]
     Active Substance: NICOTINE
     Indication: SMOKING CESSATION THERAPY
     Dosage: 7 MILLIGRAM, QD
     Route: 065
     Dates: start: 20170516
  124. NICOPATCH [Suspect]
     Active Substance: NICOTINE
     Dosage: 7 MILLIGRAM, QD
     Route: 065
  125. INSULIN LISPRO [Suspect]
     Active Substance: INSULIN LISPRO
     Dosage: 21 MICROGRAM/SQ. METER, QD
     Route: 065
  126. POTASSIUM CHLORIDE. [Suspect]
     Active Substance: POTASSIUM CHLORIDE
     Indication: HYPOKALAEMIA
     Dosage: 3600 MILLIGRAM, QD
     Route: 065
     Dates: start: 20170804
  127. CHLORPROMAZINE HYDROCHLORIDE. [Suspect]
     Active Substance: CHLORPROMAZINE HYDROCHLORIDE
     Indication: BIPOLAR I DISORDER
     Dosage: 25 MILLIGRAM, QD
     Route: 048
     Dates: start: 20170720
  128. PROPRANOLOL HYDROCHLORIDE. [Suspect]
     Active Substance: PROPRANOLOL HYDROCHLORIDE
     Dosage: 80 MILLIGRAM
     Route: 065
     Dates: start: 20170516
  129. INSULIN PORCINE [Suspect]
     Active Substance: INSULIN PORK\INSULIN PURIFIED PORK
     Indication: TYPE 2 DIABETES MELLITUS
     Dosage: UNK
     Route: 065
     Dates: start: 20161230, end: 20170224
  130. NICARDIPINE [Suspect]
     Active Substance: NICARDIPINE
     Dosage: 50 MG, UNK
     Route: 065
     Dates: start: 20170914

REACTIONS (5)
  - Foetal disorder [Unknown]
  - Premature delivery [Recovered/Resolved]
  - Neutropenia [Not Recovered/Not Resolved]
  - Low birth weight baby [Unknown]
  - Maternal exposure during pregnancy [Recovered/Resolved]

NARRATIVE: CASE EVENT DATE: 20170804
